FAERS Safety Report 8177719-2 (Version None)
Quarter: 2012Q1

REPORT INFORMATION
  Report Type: 
  Country: None (occurrence: None)
  Receive Date: 20120301
  Receipt Date: 20120228
  Transmission Date: 20120608
  Serious: Yes (Hospitalization)
  Sender: FDA-Public Use
  Company Number: PHHO2010DE06652

PATIENT
  Sex: Male
  Weight: 59.6 kg

DRUGS (21)
  1. SODIUM CHLORIDE [Concomitant]
  2. CERTICAN [Suspect]
     Indication: RENAL TRANSPLANT
     Dosage: 3 MG, BID
     Route: 048
     Dates: start: 20100426, end: 20100430
  3. ACETAMINOPHEN [Concomitant]
     Indication: PAIN PROPHYLAXIS
  4. LAMIVUDINE [Concomitant]
     Indication: HEPATITIS B
  5. PANTOPRAZOLE [Concomitant]
     Indication: GASTRITIS PROPHYLAXIS
  6. PENTAMIDINE [Concomitant]
     Indication: INFECTION PROPHYLAXIS
  7. DIPIDOLOR [Concomitant]
     Indication: PAIN PROPHYLAXIS
  8. KEPINOL [Concomitant]
     Indication: INFECTION PROPHYLAXIS
  9. SIMULECT [Concomitant]
     Indication: RENAL TRANSPLANT
     Dosage: UNK
     Route: 042
     Dates: start: 20100426, end: 20100426
  10. GELAFUNDIN [Concomitant]
  11. ALBUTEROL SULFATE [Concomitant]
     Indication: PROPHYLAXIS
  12. HEPARIN [Concomitant]
     Indication: THROMBOSIS PROPHYLAXIS
  13. CALCIUM [Concomitant]
  14. AEB071 [Suspect]
     Indication: RENAL TRANSPLANT
     Dosage: 300 MG, QD
     Route: 048
     Dates: start: 20100426, end: 20100430
  15. SIMULECT [Concomitant]
     Dosage: UNK
     Route: 042
     Dates: start: 20100430, end: 20100430
  16. TURIXIN [Concomitant]
     Indication: INFECTION PROPHYLAXIS
  17. VALCYTE [Concomitant]
     Indication: INFECTION PROPHYLAXIS
  18. LASIX [Concomitant]
     Indication: PROPHYLAXIS
  19. CANDIO-HERMAL [Concomitant]
     Indication: INFECTION PROPHYLAXIS
  20. SODIUM POLYSTYRENE SULFONATE [Concomitant]
     Indication: HYPERKALAEMIA
  21. ACETYLCYSTEINE [Concomitant]
     Indication: PROPHYLAXIS

REACTIONS (3)
  - POST PROCEDURAL HAEMATOMA [None]
  - HAEMOGLOBIN DECREASED [None]
  - ELECTROCARDIOGRAM QT PROLONGED [None]
